FAERS Safety Report 4735959-6 (Version None)
Quarter: 2005Q3

REPORT INFORMATION
  Report Type: 
  Country: None (occurrence: None)
  Receive Date: 20050805
  Receipt Date: 20050711
  Transmission Date: 20060218
  Serious: Yes (Hospitalization, Disabling)
  Sender: FDA-Public Use
  Company Number: FR-ABBOTT-05P-056-0305590-00

PATIENT
  Age: 57 Year
  Sex: Female

DRUGS (3)
  1. HUMIRA [Suspect]
     Indication: RHEUMATOID ARTHRITIS
     Route: 058
     Dates: start: 20050526
  2. PREDNISOLONE [Concomitant]
     Indication: POLYARTHRITIS
  3. PARACETAMOL [Concomitant]
     Indication: PAIN

REACTIONS (6)
  - ASTHENIA [None]
  - CHEST PAIN [None]
  - GAIT DISTURBANCE [None]
  - MOBILITY DECREASED [None]
  - NODULE [None]
  - VERTIGO [None]
